FAERS Safety Report 8817332 (Version 1)
Quarter: 2012Q4

REPORT INFORMATION
  Report Type: 
  Country: US (occurrence: US)
  Receive Date: 20121004
  Receipt Date: 20121004
  Transmission Date: 20130627
  Serious: Yes (Other)
  Sender: FDA-Public Use
  Company Number: CHPA2012US020508

PATIENT
  Age: 21 Year
  Sex: Male

DRUGS (2)
  1. PRIVATE LABEL [Suspect]
     Indication: SMOKING CESSATION THERAPY
     Dosage: 21 mg, QD
     Route: 062
     Dates: start: 200912, end: 201001
  2. CVS [Suspect]
     Indication: SMOKING CESSATION THERAPY
     Dosage: 14 mg, QD
     Route: 062
     Dates: start: 20120913

REACTIONS (2)
  - Lyme disease [Recovered/Resolved]
  - Product adhesion issue [None]
